FAERS Safety Report 15599765 (Version 2)
Quarter: 2018Q4

REPORT INFORMATION
  Report Type: Spontaneous
  Country: GR (occurrence: GR)
  Receive Date: 20181108
  Receipt Date: 20181108
  Transmission Date: 20190205
  Serious: Yes (Hospitalization, Other)
  Sender: FDA-Public Use
  Company Number: GR-BAUSCH-BL-2018-030460

PATIENT
  Age: 19 Year
  Sex: Female

DRUGS (3)
  1. MONTELUCAST [Concomitant]
     Active Substance: MONTELUKAST SODIUM
     Indication: ASTHMA
     Route: 048
  2. PREDNISOLONE. [Suspect]
     Active Substance: PREDNISOLONE
     Indication: ASTHMA
     Route: 048
  3. BUDESONIDE W/FORMOTEROL [Concomitant]
     Active Substance: BUDESONIDE\FORMOTEROL
     Indication: ASTHMA
     Dosage: 2 UNSPECIFIED DOSES (160/4.5 MCG)
     Route: 055

REACTIONS (4)
  - Substance-induced psychotic disorder [Unknown]
  - Osteoporosis [Unknown]
  - Asthma [Recovered/Resolved]
  - Treatment noncompliance [Recovered/Resolved]
